FAERS Safety Report 19909807 (Version 1)
Quarter: 2021Q4

REPORT INFORMATION
  Report Type: Spontaneous
  Country: US (occurrence: US)
  Receive Date: 20211003
  Receipt Date: 20211003
  Transmission Date: 20220303
  Serious: No
  Sender: FDA-Public Use
  Company Number: US-JNJFOC-20210955173

PATIENT
  Age: 56 Year
  Sex: Female

DRUGS (1)
  1. SIMPONI [Suspect]
     Active Substance: GOLIMUMAB
     Indication: Product used for unknown indication
     Dosage: 1 INJECTION
     Route: 058
     Dates: start: 202001

REACTIONS (2)
  - Pain in extremity [Unknown]
  - Stress [Unknown]

NARRATIVE: CASE EVENT DATE: 20210101
